FAERS Safety Report 6370766-2 (Version None)
Quarter: 2009Q3

REPORT INFORMATION
  Report Type: 
  Country: None (occurrence: None)
  Receive Date: 20090923
  Receipt Date: 20070517
  Transmission Date: 20100115
  Serious: Yes (Hospitalization)
  Sender: FDA-Public Use
  Company Number: US-ASTRAZENECA-2006UW24874

PATIENT
  Sex: Male
  Weight: 83 kg

DRUGS (15)
  1. SEROQUEL [Suspect]
     Indication: SCHIZOPHRENIA
     Dosage: 100 MG
     Route: 048
     Dates: start: 19980101, end: 20040101
  2. SEROQUEL [Suspect]
     Indication: PARANOIA
     Dosage: 100 MG
     Route: 048
     Dates: start: 19980101, end: 20040101
  3. SEROQUEL [Suspect]
     Dosage: 100 MG- 3 TABLETS- TWO TIMES A DAY
     Route: 048
     Dates: start: 19981221
  4. SEROQUEL [Suspect]
     Dosage: 100 MG- 3 TABLETS- TWO TIMES A DAY
     Route: 048
     Dates: start: 19981221
  5. RISPERDAL [Suspect]
     Indication: HALLUCINATION
     Route: 048
  6. ZYPREXA [Suspect]
     Dosage: 10 MG-3 TABLETS-BED TIMES
     Route: 048
  7. HALDOL [Concomitant]
  8. PAXIL [Concomitant]
     Dosage: 20 MG- 1/2 TABLETS - EVERY MORNING
     Route: 048
  9. DEPAKOTE [Concomitant]
     Route: 048
  10. GEMFIBROZIL [Concomitant]
     Indication: BLOOD CHOLESTEROL
     Route: 048
  11. ACCUPRIL [Concomitant]
     Indication: BLOOD PRESSURE
     Route: 048
  12. GEODON [Concomitant]
     Route: 048
  13. GLUCOPHAGE [Concomitant]
     Route: 048
  14. GLUCOTROL [Concomitant]
     Dosage: 2.5-10 MG
     Route: 048
  15. COGENTIN [Concomitant]
     Indication: SOMNOLENCE
     Dosage: 1-6 MG
     Route: 048

REACTIONS (2)
  - DIABETES MELLITUS [None]
  - DIABETIC KETOACIDOSIS [None]
